FAERS Safety Report 8615688 (Version 2)
Quarter: 2012Q4

REPORT INFORMATION
  Report Type: 
  Country: US (occurrence: US)
  Receive Date: 20120614
  Receipt Date: 20120927
  Transmission Date: 20130627
  Serious: No
  Sender: FDA-Public Use
  Company Number: US-AMGEN-USASP2012026304

PATIENT
  Age: 72 Year
  Sex: Female
  Weight: 49 kg

DRUGS (2)
  1. PROLIA [Suspect]
     Indication: OSTEOPOROSIS POSTMENOPAUSAL
     Dosage: 60 mg, q6mo
     Route: 058
     Dates: start: 20110309, end: 20110902
  2. DIOVAN [Concomitant]
     Indication: HYPERTENSION
     Dosage: 160 mg, qd
     Route: 048

REACTIONS (1)
  - Tooth fracture [Not Recovered/Not Resolved]
